FAERS Safety Report 6756864-X (Version None)
Quarter: 2010Q2

REPORT INFORMATION
  Report Type: 
  Country: None (occurrence: None)
  Receive Date: 20100604
  Receipt Date: 20100521
  Transmission Date: 20101027
  Serious: Yes (Hospitalization)
  Sender: FDA-Public Use
  Company Number: US-ASTRAZENECA-2009UW04061

PATIENT
  Age: 26538 Day
  Sex: Female

DRUGS (1)
  1. NEXIUM [Suspect]
     Route: 048
     Dates: start: 20060902

REACTIONS (4)
  - ALLERGIC SINUSITIS [None]
  - BACK DISORDER [None]
  - JOINT DISLOCATION [None]
  - LARYNGITIS [None]
